FAERS Safety Report 17841237 (Version 1)
Quarter: 2020Q2

REPORT INFORMATION
  Report Type: Spontaneous
  Country: KR (occurrence: KR)
  Receive Date: 20200529
  Receipt Date: 20200529
  Transmission Date: 20200714
  Serious: Yes (Other)
  Sender: FDA-Public Use
  Company Number: NVSC2020KR148661

PATIENT
  Age: 86 Year
  Sex: Male

DRUGS (1)
  1. LAMISIL [Suspect]
     Active Substance: TERBINAFINE HYDROCHLORIDE
     Indication: TINEA PEDIS
     Dosage: UNK
     Route: 065

REACTIONS (5)
  - Product complaint [Unknown]
  - Wrong technique in product usage process [Unknown]
  - Limb injury [Unknown]
  - Haemorrhage [Unknown]
  - Exposure via skin contact [Unknown]
